FAERS Safety Report 4559024-6 (Version None)
Quarter: 2005Q1

REPORT INFORMATION
  Report Type: 
  Country: None (occurrence: None)
  Receive Date: 20050124
  Receipt Date: 20050112
  Transmission Date: 20050727
  Serious: Yes (Hospitalization, Disabling)
  Sender: FDA-Public Use
  Company Number: SE-JNJFOC-20050102970

PATIENT
  Age: 59 Year
  Sex: Female

DRUGS (10)
  1. REMICADE [Suspect]
     Indication: RHEUMATOID ARTHRITIS
     Dosage: TOTAL OF 7 INFUSIONS.
     Route: 042
  2. METHOTREXATE [Suspect]
     Indication: RHEUMATOID ARTHRITIS
     Route: 049
  3. PREDNISOLONE [Suspect]
     Indication: RHEUMATOID ARTHRITIS
     Route: 049
  4. LANSOPRAZOLE [Concomitant]
  5. CALCICHEW D3 [Concomitant]
  6. FOLACIN [Concomitant]
  7. FOLACIN [Concomitant]
  8. VOLTAREN [Concomitant]
  9. DIKLOFENAK [Concomitant]
  10. STILNOCT [Concomitant]

REACTIONS (5)
  - ARM AMPUTATION [None]
  - CELLULITIS [None]
  - FASCIITIS [None]
  - SKIN NECROSIS [None]
  - STREPTOCOCCAL SEPSIS [None]
